FAERS Safety Report 6491203-3 (Version None)
Quarter: 2009Q4

REPORT INFORMATION
  Report Type: 
  Country: None (occurrence: None)
  Receive Date: 20091211
  Receipt Date: 20091130
  Transmission Date: 20100525
  Serious: Yes (Other)
  Sender: FDA-Public Use
  Company Number: PHEH2009US11130

PATIENT
  Sex: Female

DRUGS (2)
  1. RECLAST [Suspect]
     Dosage: UNK, ONCE/SINGLE
     Dates: start: 20080601
  2. RECLAST [Suspect]
     Dosage: UNK, ONCE/SINGLE
     Dates: start: 20090701, end: 20090701

REACTIONS (8)
  - ARTHRITIS [None]
  - BACK PAIN [None]
  - EXOSTOSIS [None]
  - HEADACHE [None]
  - INTERVERTEBRAL DISC DISORDER [None]
  - MULTIPLE FRACTURES [None]
  - NERVE COMPRESSION [None]
  - PARAESTHESIA [None]
